FAERS Safety Report 18918454 (Version 2)
Quarter: 2021Q2

REPORT INFORMATION
  Report Type: Spontaneous
  Country: US (occurrence: US)
  Receive Date: 20210220
  Receipt Date: 20210419
  Transmission Date: 20210717
  Serious: No
  Sender: FDA-Public Use
  Company Number: US-BRISTOL-MYERS SQUIBB COMPANY-BMS-2021-015948

PATIENT
  Age: 12 Year
  Sex: Female

DRUGS (1)
  1. ORENCIA [Suspect]
     Active Substance: ABATACEPT
     Indication: JUVENILE IDIOPATHIC ARTHRITIS
     Dosage: 1 MILLIGRAM, QWK
     Route: 058
     Dates: start: 20210307, end: 20210322

REACTIONS (2)
  - Product temperature excursion issue [Unknown]
  - Expired product administered [Unknown]
